FAERS Safety Report 8144814-3 (Version None)
Quarter: 2012Q1

REPORT INFORMATION
  Report Type: 
  Country: None (occurrence: None)
  Receive Date: 20120217
  Receipt Date: 20120208
  Transmission Date: 20120608
  Serious: Yes (Other)
  Sender: FDA-Public Use
  Company Number: US-PURDUE-USA-2012-0082114

PATIENT
  Sex: Male

DRUGS (1)
  1. OXYCONTIN [Suspect]
     Indication: PAIN
     Dosage: 20 MG, Q12H
     Route: 048
     Dates: start: 20120101, end: 20120201

REACTIONS (5)
  - MENTAL IMPAIRMENT [None]
  - PRODUCT FORMULATION ISSUE [None]
  - ANXIETY [None]
  - PSYCHOTIC DISORDER [None]
  - FEELING ABNORMAL [None]
